FAERS Safety Report 17109270 (Version 2)
Quarter: 2019Q4

REPORT INFORMATION
  Report Type: Report from Study
  Country: CA (occurrence: CA)
  Receive Date: 20191204
  Receipt Date: 20191227
  Transmission Date: 20200122
  Serious: Yes (Hospitalization, Other)
  Sender: FDA-Public Use
  Company Number: CA-BIOGEN-2019BI00812294

PATIENT
  Age: 31 Year
  Sex: Female

DRUGS (5)
  1. COLACE [Concomitant]
     Active Substance: DOCUSATE SODIUM
     Indication: CONSTIPATION
     Route: 065
  2. TYSABRI [Suspect]
     Active Substance: NATALIZUMAB
     Indication: MULTIPLE SCLEROSIS
     Dosage: INFUSED OVER 1 HOUR
     Route: 042
     Dates: start: 20190715
  3. VITAMIN D [Concomitant]
     Active Substance: VITAMIN D NOS
     Route: 065
  4. BACLOFEN. [Concomitant]
     Active Substance: BACLOFEN
     Indication: PRODUCT USED FOR UNKNOWN INDICATION
     Route: 048
  5. VITAMIN D [Concomitant]
     Active Substance: VITAMIN D NOS
     Indication: PRODUCT USED FOR UNKNOWN INDICATION
     Route: 065

REACTIONS (10)
  - Pain [Unknown]
  - Hepatitis C [Not Recovered/Not Resolved]
  - Neck pain [Unknown]
  - Dyspepsia [Unknown]
  - Oral candidiasis [Unknown]
  - Pain in extremity [Not Recovered/Not Resolved]
  - Liver function test increased [Unknown]
  - Back pain [Unknown]
  - Musculoskeletal stiffness [Unknown]
  - Tongue discomfort [Unknown]

NARRATIVE: CASE EVENT DATE: 201907
